FAERS Safety Report 20331778 (Version 1)
Quarter: 2022Q1

REPORT INFORMATION
  Report Type: Spontaneous
  Country: IL (occurrence: IL)
  Receive Date: 20220113
  Receipt Date: 20220113
  Transmission Date: 20220423
  Serious: Yes (Other)
  Sender: FDA-Public Use
  Company Number: IL-JNJFOC-20220117381

PATIENT

DRUGS (3)
  1. BALVERSA [Suspect]
     Active Substance: ERDAFITINIB
     Indication: Product used for unknown indication
     Route: 065
     Dates: start: 20211007
  2. BALVERSA [Suspect]
     Active Substance: ERDAFITINIB
     Dosage: 8 MG PER DAY AND 4 MG PER DAY ALTERNATE
     Route: 065
     Dates: start: 20211124
  3. BALVERSA [Suspect]
     Active Substance: ERDAFITINIB
     Route: 065

REACTIONS (3)
  - Renal impairment [Unknown]
  - Dry mouth [Unknown]
  - Stomatitis [Unknown]
